FAERS Safety Report 5413650-0 (Version None)
Quarter: 2007Q3

REPORT INFORMATION
  Report Type: 
  Country: None (occurrence: None)
  Receive Date: 20070810
  Receipt Date: 20070731
  Transmission Date: 20080115
  Serious: Yes (Congenital Anomaly)
  Sender: FDA-Public Use
  Company Number: 2007-162137-NL

PATIENT

DRUGS (1)
  1. ETONOGESTREL [Suspect]
     Dosage: DF TRANSPLACENTAL
     Route: 064
     Dates: end: 20030107

REACTIONS (3)
  - CONTRACEPTIVE DEVICE COMPLICATION [None]
  - DRUG EXPOSURE DURING PREGNANCY [None]
  - LIMB MALFORMATION [None]
